FAERS Safety Report 5042540-0 (Version None)
Quarter: 2006Q2

REPORT INFORMATION
  Report Type: 
  Country: None (occurrence: None)
  Receive Date: 20060627
  Receipt Date: 20060614
  Transmission Date: 20061013
  Serious: Yes (Hospitalization)
  Sender: FDA-Public Use
  Company Number: 2006075553

PATIENT
  Age: 60 Year
  Sex: Female

DRUGS (2)
  1. HALCION [Suspect]
     Indication: DEPRESSIVE SYMPTOM
     Dosage: 0.25 MG (0.25 MG, DAILY EVERY TWO WEEKS), ORAL
     Route: 048
  2. ALCOHOL (ETHANOL) [Concomitant]

REACTIONS (3)
  - BODY TEMPERATURE DECREASED [None]
  - OVERDOSE [None]
  - SOMNOLENCE [None]
